FAERS Safety Report 16299718 (Version 1)
Quarter: 2019Q2

REPORT INFORMATION
  Report Type: Spontaneous
  Country: JP (occurrence: JP)
  Receive Date: 20190510
  Receipt Date: 20190510
  Transmission Date: 20190711
  Serious: Yes (Life-Threatening, Hospitalization, Other)
  Sender: FDA-Public Use
  Company Number: JP-ACCORD-120872

PATIENT
  Age: 70 Year
  Sex: Male

DRUGS (4)
  1. FLUOROURACIL. [Suspect]
     Active Substance: FLUOROURACIL
     Indication: COLON CANCER METASTATIC
     Dosage: RECEIVED 400 MG/SQ.M ON DAY 1 AND 2, 46 HOURS CONTINUOUS INTRAVENOUS INJECTION
     Route: 042
  2. L-LEUCOVORIN [Concomitant]
     Active Substance: LEUCOVORIN
     Indication: COLON CANCER METASTATIC
     Dosage: 200 MG / M2 DAY 1
  3. OXALIPLATIN. [Concomitant]
     Active Substance: OXALIPLATIN
     Indication: COLON CANCER METASTATIC
     Dosage: 85 MG / M2 DAY 1, AS PRIMARY CHEMOTHERAPY FROM JUNE 20XX
  4. PANITUMUMAB [Concomitant]
     Active Substance: PANITUMUMAB
     Indication: COLON CANCER METASTATIC
     Dosage: 6 MG / KG DAY 1, STARTED ONE CYCLE FOR 2 WEEKS

REACTIONS (3)
  - Weight decreased [Unknown]
  - Hyperammonaemic encephalopathy [Recovered/Resolved]
  - Renal impairment [Unknown]
